FAERS Safety Report 7964946-X (Version None)
Quarter: 2011Q4

REPORT INFORMATION
  Report Type: 
  Country: None (occurrence: None)
  Receive Date: 20111208
  Receipt Date: 20111208
  Transmission Date: 20120403
  Serious: No
  Sender: FDA-Public Use
  Company Number: None

PATIENT
  Age: 62 Year
  Sex: Male
  Weight: 68.038 kg

DRUGS (1)
  1. CIPROFLOXACIN [Suspect]
     Indication: PROSTATIC SPECIFIC ANTIGEN INCREASED
     Dosage: 250
     Route: 048
     Dates: start: 20090115, end: 20090215

REACTIONS (1)
  - TENDON RUPTURE [None]
